FAERS Safety Report 7934560-0 (Version None)
Quarter: 2011Q4

REPORT INFORMATION
  Report Type: 
  Country: None (occurrence: None)
  Receive Date: 20111122
  Receipt Date: 20111117
  Transmission Date: 20120403
  Serious: Yes (Hospitalization)
  Sender: FDA-Public Use
  Company Number: GB-BRISTOL-MYERS SQUIBB COMPANY-16238313

PATIENT
  Age: 88 Year
  Sex: Female

DRUGS (8)
  1. MAGNESIUM HYDROXIDE [Concomitant]
     Route: 048
  2. SENNA [Concomitant]
     Route: 048
  3. WARFARIN SODIUM [Concomitant]
     Route: 048
  4. FUROSEMIDE [Concomitant]
     Route: 048
  5. ARIPIPRAZOLE [Suspect]
     Route: 048
     Dates: start: 20111001
  6. ZOPICLONE [Concomitant]
     Route: 048
  7. RIVASTIGMINE [Suspect]
     Route: 061
     Dates: start: 20111001
  8. ATORVASTATIN [Concomitant]
     Route: 048

REACTIONS (1)
  - PARKINSON'S DISEASE [None]
